FAERS Safety Report 16405569 (Version 3)
Quarter: 2019Q3

REPORT INFORMATION
  Report Type: Report from Study
  Country: JP (occurrence: JP)
  Receive Date: 20190607
  Receipt Date: 20190708
  Transmission Date: 20191004
  Serious: Yes (Hospitalization, Other)
  Sender: FDA-Public Use
  Company Number: JP-TAKEDA-2019TUS035779

PATIENT
  Age: 71 Year
  Sex: Male
  Weight: 73 kg

DRUGS (13)
  1. ONCOVIN [Concomitant]
     Active Substance: VINCRISTINE SULFATE
     Indication: BURKITT^S LYMPHOMA
     Dosage: 1 MILLIGRAM
     Route: 042
     Dates: start: 20190207, end: 20190207
  2. ADRIACIN [Concomitant]
     Active Substance: DOXORUBICIN HYDROCHLORIDE
     Indication: BURKITT^S LYMPHOMA
     Dosage: 50 MILLIGRAM
     Route: 042
     Dates: start: 20190207, end: 20190207
  3. RITUXIMAB. [Concomitant]
     Active Substance: RITUXIMAB
     Indication: BURKITT^S LYMPHOMA
     Dosage: 600 MILLIGRAM, BID
     Route: 041
     Dates: start: 20190212, end: 20190220
  4. ENDOXAN                            /00021102/ [Concomitant]
     Active Substance: CYCLOPHOSPHAMIDE
     Indication: BURKITT^S LYMPHOMA
     Dosage: 750 MILLIGRAM
     Route: 065
     Dates: start: 20190207, end: 20190207
  5. PREDONINE [Concomitant]
     Active Substance: PREDNISOLONE
     Indication: BURKITT^S LYMPHOMA
     Dosage: 100 MILLIGRAM
     Route: 065
     Dates: start: 20190207, end: 20190211
  6. OMEPRAZOLE. [Concomitant]
     Active Substance: OMEPRAZOLE
     Indication: GASTRIC ULCER HAEMORRHAGE
     Dosage: 20 MILLIGRAM, BID
     Route: 065
  7. FENTANYL. [Concomitant]
     Active Substance: FENTANYL
     Indication: BURKITT^S LYMPHOMA
     Dosage: 0.1 MILLIGRAM, QD
     Route: 065
  8. FUNGUARD [Concomitant]
     Active Substance: MICAFUNGIN SODIUM
     Indication: PROPHYLAXIS
     Dosage: 100 MILLIGRAM, QD
     Route: 041
     Dates: start: 20190213
  9. FEBUXOSTAT. [Suspect]
     Active Substance: FEBUXOSTAT
     Indication: TUMOUR LYSIS SYNDROME
     Dosage: 60 MILLIGRAM, QD
     Route: 048
     Dates: start: 20190205, end: 20190220
  10. ALBUMIN [Concomitant]
     Active Substance: ALBUMIN HUMAN
     Indication: CIRCULATORY COLLAPSE
     Dosage: 50 MILLILITER, QD
     Route: 042
     Dates: end: 20190213
  11. CEFTRIAXONE SODIUM. [Concomitant]
     Active Substance: CEFTRIAXONE SODIUM
     Indication: PROPHYLAXIS
     Dosage: 2 GRAM, QD
     Route: 042
     Dates: start: 20190207
  12. ALLOID G [Concomitant]
     Active Substance: SODIUM ALGINATE
     Indication: GASTRIC ULCER HAEMORRHAGE
     Dosage: 15 MILLILITER, QID
     Route: 048
  13. REBAMIPIDE [Concomitant]
     Active Substance: REBAMIPIDE
     Indication: GASTRIC ULCER HAEMORRHAGE
     Dosage: 100 MILLIGRAM, TID
     Route: 048

REACTIONS (4)
  - Hypocalcaemia [Recovered/Resolved]
  - Circulatory collapse [Recovered/Resolved]
  - Acute kidney injury [Recovered/Resolved]
  - Tumour lysis syndrome [Recovered/Resolved]

NARRATIVE: CASE EVENT DATE: 20190209
